FAERS Safety Report 13902648 (Version 1)
Quarter: 2017Q3

REPORT INFORMATION
  Report Type: Spontaneous
  Country: US (occurrence: US)
  Receive Date: 20170824
  Receipt Date: 20170824
  Transmission Date: 20171127
  Serious: No
  Sender: FDA-Public Use
  Company Number: US-ROCHE-1130018

PATIENT
  Sex: Female

DRUGS (6)
  1. AREDIA [Concomitant]
     Active Substance: PAMIDRONATE DISODIUM
     Route: 065
     Dates: start: 19980828
  2. HERCEPTIN [Suspect]
     Active Substance: TRASTUZUMAB
     Indication: NEUROPATHY PERIPHERAL
  3. DOXIL (ISRAEL) [Concomitant]
  4. HERCEPTIN [Suspect]
     Active Substance: TRASTUZUMAB
     Indication: METASTASIS
  5. HERCEPTIN [Suspect]
     Active Substance: TRASTUZUMAB
     Indication: BREAST CANCER
     Route: 065
  6. TAXOTERE [Concomitant]
     Active Substance: DOCETAXEL
     Route: 065
     Dates: start: 19980814

REACTIONS (16)
  - Skin lesion [Unknown]
  - Lacrimation increased [Unknown]
  - Musculoskeletal stiffness [Unknown]
  - Dyspepsia [Unknown]
  - Vertigo [Unknown]
  - Peripheral swelling [Unknown]
  - Hypoaesthesia [Unknown]
  - Pain [Unknown]
  - Visual impairment [Unknown]
  - Seasonal allergy [Unknown]
  - Nocturia [Unknown]
  - Headache [Unknown]
  - Epigastric discomfort [Unknown]
  - Asthenia [Unknown]
  - Neuropathy peripheral [Unknown]
  - Upper-airway cough syndrome [Unknown]
